FAERS Safety Report 5019639-8 (Version None)
Quarter: 2006Q2

REPORT INFORMATION
  Report Type: 
  Country: None (occurrence: None)
  Receive Date: 20060601
  Receipt Date: 20060523
  Transmission Date: 20061013
  Serious: Yes (Hospitalization, Other)
  Sender: FDA-Public Use
  Company Number: 2006067172

PATIENT
  Sex: Male

DRUGS (1)
  1. BEXTRA [Suspect]
     Indication: ILL-DEFINED DISORDER
     Dates: start: 20020801, end: 20050601

REACTIONS (3)
  - CORONARY ARTERY SURGERY [None]
  - MYOCARDIAL INFARCTION [None]
  - POLYTRAUMATISM [None]
